FAERS Safety Report 19139096 (Version 1)
Quarter: 2021Q2

REPORT INFORMATION
  Report Type: Spontaneous
  Country: US (occurrence: US)
  Receive Date: 20210415
  Receipt Date: 20210415
  Transmission Date: 20210717
  Serious: No
  Sender: FDA-Public Use
  Company Number: US-JNJFOC-20210358966

PATIENT
  Age: 52 Year
  Sex: Female

DRUGS (11)
  1. KAOPECTATE [BISMUTH SUBSALICYLATE] [Concomitant]
     Indication: NAUSEA
  2. KAOPECTATE [BISMUTH SUBSALICYLATE] [Concomitant]
     Indication: PYREXIA
  3. TYLENOL [Suspect]
     Active Substance: ACETAMINOPHEN
     Indication: FEELING HOT
     Route: 065
  4. TYLENOL [Suspect]
     Active Substance: ACETAMINOPHEN
     Indication: DIZZINESS
  5. TYLENOL [Suspect]
     Active Substance: ACETAMINOPHEN
     Indication: DRY MOUTH
  6. TYLENOL [Suspect]
     Active Substance: ACETAMINOPHEN
     Indication: NAUSEA
  7. TYLENOL [Suspect]
     Active Substance: ACETAMINOPHEN
     Indication: PYREXIA
  8. COVID?19 VACCINE NOS. [Concomitant]
     Active Substance: COVID-19 VACCINE NOS
     Dates: start: 20210327
  9. KAOPECTATE [BISMUTH SUBSALICYLATE] [Concomitant]
     Indication: FEELING HOT
     Route: 065
  10. KAOPECTATE [BISMUTH SUBSALICYLATE] [Concomitant]
     Indication: DIZZINESS
  11. KAOPECTATE [BISMUTH SUBSALICYLATE] [Concomitant]
     Indication: DRY MOUTH

REACTIONS (1)
  - Product use in unapproved indication [Unknown]
